FAERS Safety Report 25135250 (Version 1)
Quarter: 2025Q1

REPORT INFORMATION
  Report Type: Spontaneous
  Country: US (occurrence: None)
  Receive Date: 20250327
  Receipt Date: 20250327
  Transmission Date: 20250409
  Serious: Yes (Death, Other)
  Sender: FDA-CTU
  Company Number: None

PATIENT
  Age: 41 Year
  Sex: Male
  Weight: 76.5 kg

DRUGS (5)
  1. HERBALS\MITRAGYNINE [Suspect]
     Active Substance: HERBALS\MITRAGYNINE
     Route: 048
     Dates: start: 20241001, end: 20250308
  2. TRAMADOL [Concomitant]
     Active Substance: TRAMADOL
  3. ALBUTEROL [Concomitant]
     Active Substance: ALBUTEROL
  4. TRAZODONE [Concomitant]
     Active Substance: TRAZODONE HYDROCHLORIDE
  5. Daily multi-vitamin for men [Concomitant]

REACTIONS (3)
  - Drug dependence [None]
  - Completed suicide [None]
  - Mental impairment [None]
